FAERS Safety Report 6005134-6 (Version None)
Quarter: 2008Q4

REPORT INFORMATION
  Report Type: 
  Country: None (occurrence: None)
  Receive Date: 20081215
  Receipt Date: 20081203
  Transmission Date: 20090506
  Serious: Yes (Other)
  Sender: FDA-Public Use
  Company Number: DSA_32831_2008

PATIENT
  Sex: Male

DRUGS (3)
  1. ENALAPRIL MALEATE [Suspect]
     Indication: DRUG USE FOR UNKNOWN INDICATION
     Dosage: 7.5 MG BID ORAL
     Route: 048
     Dates: end: 20031207
  2. COREG [Suspect]
     Indication: DRUG USE FOR UNKNOWN INDICATION
     Dosage: 3.125 MG BID ORAL
     Route: 048
     Dates: end: 20031207
  3. PLAVIX [Suspect]
     Indication: DRUG USE FOR UNKNOWN INDICATION
     Dosage: 75 MG QD
     Dates: end: 20031207

REACTIONS (4)
  - DIARRHOEA [None]
  - DIARRHOEA HAEMORRHAGIC [None]
  - MALAISE [None]
  - MUSCLE SPASMS [None]
